FAERS Safety Report 7998335-9 (Version None)
Quarter: 2011Q4

REPORT INFORMATION
  Report Type: 
  Country: None (occurrence: None)
  Receive Date: 20111221
  Receipt Date: 20110721
  Transmission Date: 20120403
  Serious: No
  Sender: FDA-Public Use
  Company Number: US-GLAXOSMITHKLINE-A0937578A

PATIENT
  Age: 82 Year
  Sex: Female

DRUGS (4)
  1. DIAZIDE [Concomitant]
  2. SYNTHROID [Concomitant]
  3. CALCIUM [Concomitant]
  4. LOVAZA [Suspect]
     Indication: BLOOD TRIGLYCERIDES INCREASED
     Dosage: 4G PER DAY
     Route: 048
     Dates: start: 20110701, end: 20110715

REACTIONS (3)
  - EAR PRURITUS [None]
  - PRURITUS [None]
  - ILL-DEFINED DISORDER [None]
